FAERS Safety Report 15968654 (Version 1)
Quarter: 2019Q1

REPORT INFORMATION
  Report Type: Report from Study
  Country: ES (occurrence: ES)
  Receive Date: 20190215
  Receipt Date: 20190215
  Transmission Date: 20190418
  Serious: Yes (Other)
  Sender: FDA-Public Use
  Company Number: ES-SA-2019SA030552

PATIENT
  Sex: Female

DRUGS (1)
  1. INSULIN GLARGINE [Suspect]
     Active Substance: INSULIN GLARGINE
     Indication: TYPE 2 DIABETES MELLITUS
     Dosage: 74 IU, QD
     Route: 058
     Dates: start: 2016

REACTIONS (4)
  - Hypertension [Not Recovered/Not Resolved]
  - Cardiomyopathy [Not Recovered/Not Resolved]
  - Blood pressure inadequately controlled [Not Recovered/Not Resolved]
  - Nervousness [Not Recovered/Not Resolved]
